FAERS Safety Report 25744667 (Version 1)
Quarter: 2025Q3

REPORT INFORMATION
  Report Type: Spontaneous
  Country: GB (occurrence: GB)
  Receive Date: 20250901
  Receipt Date: 20250901
  Transmission Date: 20251020
  Serious: No
  Sender: ALKEM
  Company Number: GB-ALKEM LABORATORIES LIMITED-GB-ALKEM-2025-03626

PATIENT
  Sex: Male

DRUGS (2)
  1. PREGABALIN [Suspect]
     Active Substance: PREGABALIN
     Indication: Product used for unknown indication
     Dosage: 25 MILLIGRAM, BID (TWICE A DAY), HARD CAPSULE
     Route: 048
  2. PREGABALIN [Suspect]
     Active Substance: PREGABALIN
     Dosage: 75 MILLIGRAM, BID (TWICE A DAY), HARD CAPSULE
     Route: 048

REACTIONS (6)
  - Benign prostatic hyperplasia [Unknown]
  - Dysuria [Unknown]
  - Increased appetite [Unknown]
  - Weight increased [Unknown]
  - Insomnia [Unknown]
  - Feeling abnormal [Unknown]
